FAERS Safety Report 10311997 (Version 1)
Quarter: 2014Q3

REPORT INFORMATION
  Report Type: Spontaneous
  Country: CH (occurrence: None)
  Receive Date: 20140714
  Receipt Date: 20140714
  Transmission Date: 20150326
  Serious: Yes (Other)
  Sender: FDA-Public Use
  Company Number: 20140406

PATIENT
  Age: 24 Year
  Sex: Female
  Weight: 70 kg

DRUGS (3)
  1. TRANQUILIZERS (UNSPECIFIED) [Concomitant]
  2. INSULINE (INSULIN PORCINE) [Concomitant]
  3. FERINJECT [Suspect]
     Active Substance: FERRIC CARBOXYMALTOSE
     Indication: PRODUCT USED FOR UNKNOWN INDICATION
     Dosage: 500MG IN 500ML NACL
     Route: 041
     Dates: start: 201311

REACTIONS (5)
  - Rash [None]
  - Myalgia [None]
  - Wrong technique in drug usage process [None]
  - Erythema [None]
  - Bone pain [None]

NARRATIVE: CASE EVENT DATE: 2013
